FAERS Safety Report 4911168-2 (Version None)
Quarter: 2006Q1

REPORT INFORMATION
  Report Type: 
  Country: None (occurrence: None)
  Receive Date: 20060209
  Receipt Date: 20060124
  Transmission Date: 20060701
  Serious: Yes (Other)
  Sender: FDA-Public Use
  Company Number: FR200601004524

PATIENT
  Age: 58 Year
  Sex: Female

DRUGS (4)
  1. FORTEO [Suspect]
     Indication: OSTEOPOROSIS
     Dosage: 20 UG, DAILY (1/D), SUBCUTANEOUS
     Route: 058
     Dates: start: 20041105, end: 20060116
  2. FORTEO [Concomitant]
  3. ENDOTELON (HERBAL EXTRACTS NOS, VITIS VINIFERA) [Concomitant]
  4. ACETAMINOPHEN [Concomitant]

REACTIONS (1)
  - NEOPLASM [None]
